FAERS Safety Report 26113754 (Version 1)
Quarter: 2025Q4

REPORT INFORMATION
  Report Type: Spontaneous
  Country: US (occurrence: None)
  Receive Date: 20251202
  Receipt Date: 20251202
  Transmission Date: 20260119
  Serious: Yes (Hospitalization)
  Sender: FDA-CTU
  Company Number: None

PATIENT
  Age: 29 Month
  Sex: Female
  Weight: 11.6 kg

DRUGS (4)
  1. BYLVAY [Suspect]
     Active Substance: ODEVIXIBAT
     Indication: Cholestasis
     Dosage: 400 MG DAILY
  2. cholecaciferol [Concomitant]
  3. MINERALS\VITAMINS [Concomitant]
     Active Substance: MINERALS\VITAMINS
  4. ODEVIXIBAT [Concomitant]
     Active Substance: ODEVIXIBAT
     Dates: start: 20240301

REACTIONS (17)
  - Acute respiratory failure [None]
  - Anaemia [None]
  - Oedema [None]
  - Blood lactic acid increased [None]
  - Acidosis [None]
  - Hepatomegaly [None]
  - Ascites [None]
  - Splenomegaly [None]
  - Lung infiltration [None]
  - Pneumonia [None]
  - Pleural effusion [None]
  - Transfusion [None]
  - Mitral valve incompetence [None]
  - Tricuspid valve incompetence [None]
  - Pericardial effusion [None]
  - Procedural complication [None]
  - Agitation [None]

NARRATIVE: CASE EVENT DATE: 20251117
